FAERS Safety Report 21301557 (Version 1)
Quarter: 2022Q3

REPORT INFORMATION
  Report Type: Spontaneous
  Country: US (occurrence: None)
  Receive Date: 20220906
  Receipt Date: 20220906
  Transmission Date: 20221027
  Serious: No
  Sender: FDA-Public Use
  Company Number: None

PATIENT
  Age: 70 Year
  Sex: Male
  Weight: 83.87 kg

DRUGS (14)
  1. ERLEADA [Suspect]
     Active Substance: APALUTAMIDE
     Indication: Prostate cancer
     Dosage: FREQUENCY : DAILY;?
     Route: 048
  2. AMLODIPINE BESYLATE [Concomitant]
  3. ATORVASTATIN [Concomitant]
  4. CARVEDILOL [Concomitant]
     Active Substance: CARVEDILOL
  5. CLINDAMYCIN [Concomitant]
  6. CLOTRIMAZOLE [Concomitant]
  7. FINASTERIDE [Concomitant]
  8. GLIPIZIDE [Concomitant]
  9. LORATADINE [Concomitant]
  10. MINOXIDIL [Concomitant]
     Active Substance: MINOXIDIL
  11. PANTOPRAZOLE POTASSIUM [Concomitant]
  12. TAMSULOSIN [Concomitant]
     Active Substance: TAMSULOSIN
  13. TOUJEO [Concomitant]
     Active Substance: INSULIN GLARGINE
  14. VENLAFAXINE [Concomitant]

REACTIONS (5)
  - COVID-19 [None]
  - Asthenia [None]
  - Ageusia [None]
  - Anosmia [None]
  - Decreased appetite [None]
